FAERS Safety Report 11334861 (Version 1)
Quarter: 2015Q3

REPORT INFORMATION
  Report Type: Spontaneous
  Country: PT (occurrence: None)
  Receive Date: 20150731
  Receipt Date: 20150731
  Transmission Date: 20151125
  Serious: Yes (Disabling)
  Sender: FDA-Public Use
  Company Number: PR 13075

PATIENT
  Sex: Male
  Weight: 57 kg

DRUGS (1)
  1. COSOPT [Suspect]
     Active Substance: DORZOLAMIDE HYDROCHLORIDE\TIMOLOL MALEATE
     Dates: start: 20121231, end: 20130304

REACTIONS (3)
  - Dyspnoea [None]
  - Gamma-glutamyltransferase increased [None]
  - Fatigue [None]
